FAERS Safety Report 7271737-4 (Version None)
Quarter: 2011Q1

REPORT INFORMATION
  Report Type: 
  Country: None (occurrence: None)
  Receive Date: 20110203
  Receipt Date: 20110126
  Transmission Date: 20110831
  Serious: Yes (Death)
  Sender: FDA-Public Use
  Company Number: JP-BRISTOL-MYERS SQUIBB COMPANY-15512924

PATIENT
  Age: 59 Year
  Sex: Male

DRUGS (1)
  1. MAXIPIME [Suspect]
     Indication: TONSILLITIS
     Route: 041
     Dates: start: 20110126, end: 20110126

REACTIONS (1)
  - ANAPHYLACTIC SHOCK [None]
